FAERS Safety Report 18143819 (Version 1)
Quarter: 2020Q3

REPORT INFORMATION
  Report Type: Spontaneous
  Country: US (occurrence: US)
  Receive Date: 20200813
  Receipt Date: 20200813
  Transmission Date: 20201103
  Serious: No
  Sender: FDA-Public Use
  Company Number: US-009507513-2008USA004668

PATIENT
  Age: 18 Year
  Weight: 62.6 kg

DRUGS (1)
  1. NOXAFIL [Suspect]
     Active Substance: POSACONAZOLE
     Indication: FUNGAL INFECTION
     Dosage: 4.8 MG/KG/DAY, 300 MILLIGRAM DAILY
     Route: 048

REACTIONS (1)
  - Product use in unapproved indication [Unknown]
